FAERS Safety Report 18321830 (Version 2)
Quarter: 2020Q3

REPORT INFORMATION
  Report Type: Spontaneous
  Country: US (occurrence: US)
  Receive Date: 20200929
  Receipt Date: 20200930
  Transmission Date: 20201103
  Serious: Yes (Other)
  Sender: FDA-Public Use
  Company Number: US-ASTRAZENECA-2020SF23988

PATIENT
  Sex: Female
  Weight: 63.5 kg

DRUGS (5)
  1. MAYBE TRELEGY [Concomitant]
     Indication: PRODUCT TAMPERING
     Dosage: UNKNOWN
     Route: 065
  2. IPRATROTIUM BROMIDE AND ALBUTEROL SULFATE [Concomitant]
     Indication: ILL-DEFINED DISORDER
     Dosage: 0.5 MG, UNKNWON
     Route: 055
  3. PREDNISONE. [Concomitant]
     Active Substance: PREDNISONE
     Indication: CHRONIC OBSTRUCTIVE PULMONARY DISEASE
     Route: 065
  4. ADVAIR HFA [Concomitant]
     Active Substance: FLUTICASONE PROPIONATE\SALMETEROL XINAFOATE
  5. SYMBICORT [Suspect]
     Active Substance: BUDESONIDE\FORMOTEROL FUMARATE DIHYDRATE
     Indication: CHRONIC OBSTRUCTIVE PULMONARY DISEASE
     Dosage: UNKNOWN, TWO TIMES A DAY
     Route: 055

REACTIONS (10)
  - Dyspnoea [Unknown]
  - Osteoporosis [Unknown]
  - Memory impairment [Unknown]
  - Bone disorder [Unknown]
  - Drug ineffective [Unknown]
  - Chronic obstructive pulmonary disease [Not Recovered/Not Resolved]
  - Cushingoid [Unknown]
  - Feeling abnormal [Unknown]
  - Swelling [Unknown]
  - Body height decreased [Unknown]
